FAERS Safety Report 6027346-8 (Version None)
Quarter: 2009Q1

REPORT INFORMATION
  Report Type: 
  Country: None (occurrence: None)
  Receive Date: 20090105
  Receipt Date: 20081222
  Transmission Date: 20090719
  Serious: Yes (Hospitalization)
  Sender: FDA-Public Use
  Company Number: B0551326A

PATIENT
  Age: 39 Year
  Sex: Male

DRUGS (3)
  1. EPIVIR [Suspect]
     Indication: HIV INFECTION
     Route: 048
     Dates: start: 20071101
  2. EFAVIRENZ [Concomitant]
     Indication: HIV INFECTION
     Dates: start: 20071101
  3. OTHER ANTIRETROVIRALS [Concomitant]
     Indication: HIV INFECTION
     Dates: start: 20071101

REACTIONS (6)
  - BONE MARROW FAILURE [None]
  - DYSPNOEA EXERTIONAL [None]
  - HAEMOGLOBIN DECREASED [None]
  - NORMOCHROMIC NORMOCYTIC ANAEMIA [None]
  - PALPITATIONS [None]
  - PANCYTOPENIA [None]
